FAERS Safety Report 6639420-3 (Version None)
Quarter: 2010Q1

REPORT INFORMATION
  Report Type: 
  Country: None (occurrence: None)
  Receive Date: 20100318
  Receipt Date: 20100314
  Transmission Date: 20100710
  Serious: Yes (Hospitalization)
  Sender: FDA-Public Use
  Company Number: US-SP-2010-01290

PATIENT

DRUGS (1)
  1. TUBERSOL [Suspect]
     Indication: TUBERCULIN TEST
     Route: 023

REACTIONS (4)
  - ADMINISTRATION SITE PAIN [None]
  - INJECTION SITE VESICLES [None]
  - PRODUCT QUALITY ISSUE [None]
  - SKIN LESION [None]
